FAERS Safety Report 6006348-1 (Version None)
Quarter: 2008Q4

REPORT INFORMATION
  Report Type: 
  Country: None (occurrence: None)
  Receive Date: 20081217
  Receipt Date: 20081210
  Transmission Date: 20090506
  Serious: Yes (Life-Threatening, Hospitalization)
  Sender: FDA-Public Use
  Company Number: DE-ELI_LILLY_AND_COMPANY-DE200812002900

PATIENT
  Sex: Male

DRUGS (2)
  1. BYETTA [Suspect]
     Indication: TYPE 2 DIABETES MELLITUS
     Dosage: 10 UG, 2/D
     Dates: start: 20080101, end: 20080101
  2. AMARYL [Concomitant]
     Dosage: 1 MG, DAILY (1/D)

REACTIONS (3)
  - ACUTE CORONARY SYNDROME [None]
  - HYPERTRIGLYCERIDAEMIA [None]
  - TREATMENT NONCOMPLIANCE [None]
